FAERS Safety Report 12009615 (Version 1)
Quarter: 2016Q1

REPORT INFORMATION
  Report Type: Spontaneous
  Country: US (occurrence: None)
  Receive Date: 20160204
  Receipt Date: 20160204
  Transmission Date: 20160526
  Serious: Yes (Other)
  Sender: FDA-Public Use
  Company Number: None

PATIENT
  Age: 21 Year
  Sex: Female

DRUGS (2)
  1. GLUCOLA FISHER THERMO DIAGNOSTICS [Suspect]
     Active Substance: DEXTROSE
     Indication: GLUCOSE TOLERANCE TEST
     Dates: start: 20160129, end: 20160129
  2. MOTRIN [Suspect]
     Active Substance: IBUPROFEN

REACTIONS (4)
  - Paraesthesia oral [None]
  - Reaction to colouring [None]
  - Erythema [None]
  - Oral discomfort [None]

NARRATIVE: CASE EVENT DATE: 20160129
